FAERS Safety Report 5747095-0 (Version None)
Quarter: 2008Q2

REPORT INFORMATION
  Report Type: 
  Country: None (occurrence: None)
  Receive Date: 20080522
  Receipt Date: 20080516
  Transmission Date: 20081010
  Serious: Yes (Hospitalization)
  Sender: FDA-Public Use
  Company Number: US-BOEHRINGER INGELHEIM GMBH, GERMANY-2008-BP-07736BP

PATIENT
  Age: 82 Year
  Sex: Female

DRUGS (1)
  1. ATROVENT HFA [Suspect]

REACTIONS (1)
  - COLON CANCER [None]
